FAERS Safety Report 5669338-4 (Version None)
Quarter: 2008Q1

REPORT INFORMATION
  Report Type: 
  Country: None (occurrence: None)
  Receive Date: 20080317
  Receipt Date: 20080307
  Transmission Date: 20080703
  Serious: Yes (Hospitalization, Other)
  Sender: FDA-Public Use
  Company Number: PHHY2008JP02288

PATIENT
  Sex: Female

DRUGS (8)
  1. ENDOXAN [Concomitant]
     Indication: STEM CELL TRANSPLANT
     Route: 042
     Dates: start: 20050101
  2. METHOTREXATE [Concomitant]
     Indication: STEM CELL TRANSPLANT
     Route: 065
     Dates: start: 20050101
  3. CYCLOSPORINE [Suspect]
     Indication: STEM CELL TRANSPLANT
     Dosage: UNK, UNK
     Dates: start: 20050301
  4. CYCLOSPORINE [Suspect]
     Dosage: 100 MG, UNK
  5. PREDNISOLONE [Concomitant]
     Dosage: 50 MG
  6. IRRADIATION [Concomitant]
  7. CSA [Concomitant]
     Dosage: 100 MG
  8. DDS [Concomitant]

REACTIONS (9)
  - ADENOVIRAL HAEMORRHAGIC CYSTITIS [None]
  - BLISTER [None]
  - CYTOMEGALOVIRUS INFECTION [None]
  - GINGIVAL BLISTER [None]
  - ORAL INTAKE REDUCED [None]
  - OROPHARYNGEAL BLISTERING [None]
  - PEMPHIGOID [None]
  - PHARYNGOLARYNGEAL PAIN [None]
  - WEIGHT DECREASED [None]
